FAERS Safety Report 7076464-4 (Version None)
Quarter: 2010Q4

REPORT INFORMATION
  Report Type: 
  Country: None (occurrence: None)
  Receive Date: 20101029
  Receipt Date: 20101029
  Transmission Date: 20110411
  Serious: Yes (Hospitalization)
  Sender: FDA-Public Use
  Company Number: None

PATIENT
  Age: 56 Year
  Sex: Female
  Weight: 103.4 kg

DRUGS (9)
  1. METOPROLOL TARTRATE [Suspect]
     Indication: CHEST PAIN
     Dosage: 25MG PO DAILY
  2. QUETIAPINE [Concomitant]
  3. IBUPROFEN [Concomitant]
  4. ZOLPIDEM [Concomitant]
  5. MECLIZINE [Concomitant]
  6. LORAZEPAM [Concomitant]
  7. RISPERIDONE MICROSPHERE [Concomitant]
  8. ARIPIPRAZOLE [Concomitant]
  9. RISPERIDONE [Concomitant]

REACTIONS (3)
  - CHEST PAIN [None]
  - SINUS BRADYCARDIA [None]
  - SYNCOPE [None]
